FAERS Safety Report 5734024-9 (Version None)
Quarter: 2008Q2

REPORT INFORMATION
  Report Type: 
  Country: None (occurrence: None)
  Receive Date: 20080509
  Receipt Date: 20080501
  Transmission Date: 20081010
  Serious: Yes (Other)
  Sender: FDA-Public Use
  Company Number: US-PFIZER INC-2008037988

PATIENT
  Sex: Female
  Weight: 69.545 kg

DRUGS (3)
  1. CELEBREX [Suspect]
     Indication: INFLAMMATION
     Dates: start: 20080429, end: 20080430
  2. CELEBREX [Suspect]
     Indication: PAIN
  3. LEVAQUIN [Concomitant]

REACTIONS (6)
  - FATIGUE [None]
  - FEELING COLD [None]
  - LIP DISCOLOURATION [None]
  - MEMORY IMPAIRMENT [None]
  - SKIN DISCOLOURATION [None]
  - VOMITING [None]
